FAERS Safety Report 21083393 (Version 1)
Quarter: 2022Q3

REPORT INFORMATION
  Report Type: Spontaneous
  Country: ES (occurrence: ES)
  Receive Date: 20220714
  Receipt Date: 20220714
  Transmission Date: 20221027
  Serious: Yes (Hospitalization, Other)
  Sender: FDA-Public Use
  Company Number: ES-AMNEAL PHARMACEUTICALS-2022-AMRX-02070

PATIENT
  Age: 66 Year
  Sex: Female

DRUGS (6)
  1. ALYMSYS [Suspect]
     Active Substance: BEVACIZUMAB-MALY
     Indication: Ovarian cancer
     Dosage: UNK
     Route: 042
  2. ALYMSYS [Suspect]
     Active Substance: BEVACIZUMAB-MALY
     Indication: Fallopian tube cancer
  3. PACLITAXEL [Concomitant]
     Active Substance: PACLITAXEL
     Indication: Ovarian cancer
  4. PACLITAXEL [Concomitant]
     Active Substance: PACLITAXEL
     Indication: Fallopian tube cancer
  5. CARBOPLATIN [Concomitant]
     Active Substance: CARBOPLATIN
     Indication: Ovarian cancer
     Dosage: UNK
     Route: 065
  6. CARBOPLATIN [Concomitant]
     Active Substance: CARBOPLATIN
     Indication: Fallopian tube cancer

REACTIONS (1)
  - Anaphylactic reaction [Recovered/Resolved]
